FAERS Safety Report 10263074 (Version 2)
Quarter: 2014Q2

REPORT INFORMATION
  Report Type: Report from Study
  Country: US (occurrence: US)
  Receive Date: 20140626
  Receipt Date: 20140626
  Transmission Date: 20141212
  Serious: Yes (Death)
  Sender: FDA-Public Use
  Company Number: US-MYLANLABS-2014S1000525

PATIENT
  Sex: Female

DRUGS (1)
  1. CLOZAPINE TABLETS [Suspect]
     Indication: SCHIZOAFFECTIVE DISORDER
     Route: 048
     Dates: start: 201303, end: 201304

REACTIONS (2)
  - Renal failure [Fatal]
  - Renal surgery [Fatal]
